FAERS Safety Report 6761525-7 (Version None)
Quarter: 2010Q2

REPORT INFORMATION
  Report Type: 
  Country: None (occurrence: None)
  Receive Date: 20100607
  Receipt Date: 20100524
  Transmission Date: 20101027
  Serious: Yes (Hospitalization)
  Sender: FDA-Public Use
  Company Number: 7005958

PATIENT
  Age: 48 Year
  Sex: Male
  Weight: 88 kg

DRUGS (5)
  1. REBIF [Suspect]
     Dosage: 44 MCG, 3 IN 1 WK, SUBCUTANEOUS
     Route: 058
     Dates: start: 20030315
  2. AMANTADINE (AMANTADINE) [Concomitant]
  3. CARBAMAZEPINE (CARSAMAZEPINE) [Concomitant]
  4. COZAAR (LOSARTAN  POTASSIUM) [Concomitant]
  5. BACLOFEN [Concomitant]

REACTIONS (3)
  - ARTHRITIS [None]
  - FACIAL SPASM [None]
  - GASTROENTERITIS VIRAL [None]
